FAERS Safety Report 11953868 (Version 2)
Quarter: 2017Q1

REPORT INFORMATION
  Report Type: Report from Study
  Country: US (occurrence: US)
  Receive Date: 20160125
  Receipt Date: 20170206
  Transmission Date: 20170428
  Serious: No
  Sender: FDA-Public Use
  Company Number: US-AMGEN-USASL2016005733

PATIENT
  Age: 61 Year
  Sex: Female

DRUGS (1)
  1. ENBREL [Suspect]
     Active Substance: ETANERCEPT
     Indication: RHEUMATOID ARTHRITIS
     Dosage: 50 MG, ONCE WEEKLY
     Route: 065
     Dates: start: 20141023

REACTIONS (5)
  - Proteinuria [Unknown]
  - Face injury [Unknown]
  - Rotator cuff syndrome [Unknown]
  - Urinary tract infection [Unknown]
  - Fall [Unknown]

NARRATIVE: CASE EVENT DATE: 201510
